FAERS Safety Report 4345572-0 (Version None)
Quarter: 2004Q1

REPORT INFORMATION
  Report Type: 
  Country: None (occurrence: None)
  Receive Date: 20040325
  Receipt Date: 20040108
  Transmission Date: 20041129
  Serious: No
  Sender: FDA-Public Use
  Company Number: USA040156114

PATIENT
  Age: 58 Year
  Sex: Female

DRUGS (4)
  1. FORTEO [Suspect]
     Indication: OSTEOPOROSIS
     Dates: start: 20031222, end: 20040105
  2. CALCIUM [Concomitant]
  3. PROGESTERONE [Concomitant]
  4. THYROID TAB [Concomitant]

REACTIONS (1)
  - BONE PAIN [None]
